FAERS Safety Report 10754598 (Version 1)
Quarter: 2015Q1

REPORT INFORMATION
  Report Type: Spontaneous
  Country: US (occurrence: US)
  Receive Date: 20150202
  Receipt Date: 20150202
  Transmission Date: 20150721
  Serious: No
  Sender: FDA-Public Use
  Company Number: US-SHIRE-US201500738

PATIENT
  Age: 65 Year
  Sex: Female

DRUGS (2)
  1. VYVANSE [Suspect]
     Active Substance: LISDEXAMFETAMINE DIMESYLATE
     Indication: ATTENTION DEFICIT/HYPERACTIVITY DISORDER
     Dosage: 70 MG, 1X/DAY:QD
     Route: 048
     Dates: start: 2013
  2. AMINO ACIDS NOS [Concomitant]
     Indication: DEPRESSION
     Dosage: UNK, UNKNOWN
     Route: 065

REACTIONS (3)
  - Adverse reaction [Unknown]
  - Pruritus [Not Recovered/Not Resolved]
  - Rash [Not Recovered/Not Resolved]

NARRATIVE: CASE EVENT DATE: 201407
